FAERS Safety Report 14178383 (Version 6)
Quarter: 2017Q4

REPORT INFORMATION
  Report Type: Report from Study
  Country: DE (occurrence: DE)
  Receive Date: 20171110
  Receipt Date: 20171219
  Transmission Date: 20180321
  Serious: Yes (Other)
  Sender: FDA-Public Use
  Company Number: DE-AMGEN-DEUNI2017169618

PATIENT
  Age: 36 Year
  Sex: Female
  Weight: 84 kg

DRUGS (5)
  1. MAGISTRAL [Concomitant]
     Indication: PSORIASIS
     Dosage: UNK UNK, AS NEEDED
     Dates: start: 20161122, end: 20170110
  2. ETANERCEPT [Suspect]
     Active Substance: ETANERCEPT
     Indication: PSORIASIS
     Dosage: 50 MG, QWK
     Route: 065
     Dates: start: 20160913, end: 20170113
  3. ETANERCEPT [Suspect]
     Active Substance: ETANERCEPT
     Indication: PSORIASIS
     Dosage: UNK
     Route: 065
  4. BETAMETHASON [Concomitant]
     Active Substance: BETAMETHASONE
     Indication: PSORIASIS
     Dosage: UNK, AS NEEDED
     Route: 065
     Dates: start: 20161122, end: 20170115
  5. AMOXICILLIN/CLAVULANIC ACID [Suspect]
     Active Substance: AMOXICILLIN\CLAVULANIC ACID
     Indication: BRONCHITIS
     Dosage: 1 G, 2X/DAY
     Route: 048
     Dates: start: 20170113, end: 20170114

REACTIONS (2)
  - Drug hypersensitivity [Recovered/Resolved]
  - Bronchitis [Recovered/Resolved]

NARRATIVE: CASE EVENT DATE: 20170113
